FAERS Safety Report 9494154 (Version 5)
Quarter: 2013Q4

REPORT INFORMATION
  Report Type: Spontaneous
  Country: US (occurrence: None)
  Receive Date: 20130828
  Receipt Date: 20131028
  Transmission Date: 20140711
  Serious: Yes (Other)
  Sender: FDA-Public Use
  Company Number: ACO_37751_2013

PATIENT
  Age: 65 Year
  Sex: Male
  Weight: 104.3 kg

DRUGS (11)
  1. AMPYRA (DALFAMPRIDINE) TABLET, 10MG [Suspect]
     Indication: GAIT DISTURBANCE
     Route: 048
     Dates: start: 20130717, end: 2013
  2. AMPYRA (DALFAMPRIDINE) TABLET, 10MG [Suspect]
     Indication: MULTIPLE SCLEROSIS
     Route: 048
     Dates: start: 20130717, end: 2013
  3. TYSABRI (NATALIZUMAB) [Concomitant]
  4. PROVIGIL (MODAFINIL) [Concomitant]
  5. GABAPENTIN [Suspect]
     Indication: NEURALGIA
     Route: 048
     Dates: start: 2013
  6. BACLOFEN (BACLOFEN) [Concomitant]
  7. VESICARE (SOLIFENACIN SUCCINATE) [Concomitant]
  8. ASPIRIN (ACETYLSALICYLIC ACID) [Concomitant]
  9. PRAVASTATIN (PRAVASTATIN SODIUM) [Concomitant]
  10. COZAAR (LOSARTAN POTASSIUM) [Concomitant]
  11. ATENOLOL (ATENOLOL) [Concomitant]

REACTIONS (8)
  - Abasia [None]
  - Neuralgia [None]
  - Coccydynia [None]
  - Fatigue [None]
  - Drug interaction [None]
  - Walking aid user [None]
  - Drug ineffective [None]
  - Condition aggravated [None]
